FAERS Safety Report 7401020-5 (Version None)
Quarter: 2011Q2

REPORT INFORMATION
  Report Type: 
  Country: None (occurrence: None)
  Receive Date: 20110407
  Receipt Date: 20110402
  Transmission Date: 20111010
  Serious: Yes (Other)
  Sender: FDA-Public Use
  Company Number: IN-GENZYME-CERZ-1001981

PATIENT

DRUGS (1)
  1. CEREZYME [Suspect]
     Indication: GAUCHER'S DISEASE
     Dosage: 400 U, Q2W
     Route: 042
     Dates: start: 20090824

REACTIONS (4)
  - RESPIRATORY DISTRESS [None]
  - ANAPHYLACTIC REACTION [None]
  - HYPERHIDROSIS [None]
  - COUGH [None]
